FAERS Safety Report 25335673 (Version 2)
Quarter: 2025Q3

REPORT INFORMATION
  Report Type: Spontaneous
  Country: US (occurrence: US)
  Receive Date: 20250520
  Receipt Date: 20250707
  Transmission Date: 20251020
  Serious: Yes (Other)
  Sender: MYLAN
  Company Number: US-MYLANLABS-2025M1042372

PATIENT
  Sex: Male

DRUGS (4)
  1. ATENOLOL [Suspect]
     Active Substance: ATENOLOL
     Indication: Hypertension
  2. ATENOLOL [Suspect]
     Active Substance: ATENOLOL
     Route: 065
  3. ATENOLOL [Suspect]
     Active Substance: ATENOLOL
     Route: 065
  4. ATENOLOL [Suspect]
     Active Substance: ATENOLOL

REACTIONS (2)
  - Nephrolithiasis [Unknown]
  - Renal impairment [Unknown]
